FAERS Safety Report 13945528 (Version 1)
Quarter: 2017Q3

REPORT INFORMATION
  Report Type: Spontaneous
  Country: US (occurrence: US)
  Receive Date: 20170907
  Receipt Date: 20170907
  Transmission Date: 20171128
  Serious: Yes (Other)
  Sender: FDA-Public Use
  Company Number: US-TEVA-804129USA

PATIENT
  Sex: Female
  Weight: 109.41 kg

DRUGS (2)
  1. DEXAMETHASONE. [Concomitant]
     Active Substance: DEXAMETHASONE
     Dosage: DAILY
  2. LEVETIRACETAM. [Suspect]
     Active Substance: LEVETIRACETAM
     Indication: GENERALISED TONIC-CLONIC SEIZURE
     Dosage: 3000 MILLIGRAM DAILY;
     Route: 065

REACTIONS (5)
  - Aggression [Unknown]
  - Gait inability [Unknown]
  - Hypersomnia [Unknown]
  - Memory impairment [Unknown]
  - Incontinence [Unknown]
